FAERS Safety Report 6596870-1 (Version None)
Quarter: 2010Q1

REPORT INFORMATION
  Report Type: 
  Country: None (occurrence: None)
  Receive Date: 20100212
  Receipt Date: 20100204
  Transmission Date: 20100710
  Serious: Yes (Other)
  Sender: FDA-Public Use
  Company Number: 2010SP007363

PATIENT
  Sex: Female

DRUGS (2)
  1. SAPHRIS [Suspect]
     Indication: MANIA
     Dosage: 5 MG; BID; PO
     Route: 048
  2. PROZAC [Concomitant]

REACTIONS (1)
  - SUICIDAL IDEATION [None]
